FAERS Safety Report 6215969-2 (Version None)
Quarter: 2009Q2

REPORT INFORMATION
  Report Type: 
  Country: None (occurrence: None)
  Receive Date: 20090603
  Receipt Date: 20090603
  Transmission Date: 20091009
  Serious: Yes (Disabling)
  Sender: FDA-Public Use
  Company Number: None

PATIENT
  Age: 72 Year
  Sex: Female
  Weight: 81.6475 kg

DRUGS (2)
  1. FLUTICASONE PROPIONATE [Suspect]
     Dosage: 50 MCG SPRAY 2 SPRAYS EACH NOSTRIL ONCE/DAY 5 DAYS 2 SPRAYS 2 DAYS 1 SPRAY 7 DAYS
  2. AZITHROMYCIN [Concomitant]

REACTIONS (10)
  - AGEUSIA [None]
  - ANOSMIA [None]
  - DRY EYE [None]
  - EPISTAXIS [None]
  - EYE IRRITATION [None]
  - MOUTH ULCERATION [None]
  - NASAL CONGESTION [None]
  - NASAL INFLAMMATION [None]
  - POSTNASAL DRIP [None]
  - VISION BLURRED [None]
